FAERS Safety Report 9224113 (Version 1)
Quarter: 2013Q2

REPORT INFORMATION
  Report Type: Spontaneous
  Country: US (occurrence: US)
  Receive Date: 20130411
  Receipt Date: 20130411
  Transmission Date: 20140414
  Serious: No
  Sender: FDA-Public Use
  Company Number: US-PFIZER INC-2013108729

PATIENT
  Age: 77 Year
  Sex: Female
  Weight: 67.57 kg

DRUGS (1)
  1. ADVIL [Suspect]
     Indication: PAIN IN EXTREMITY
     Dosage: UNK
     Dates: start: 20130404

REACTIONS (2)
  - Drug ineffective [Unknown]
  - Tremor [Recovered/Resolved]
